FAERS Safety Report 4335889-8 (Version None)
Quarter: 2004Q2

REPORT INFORMATION
  Report Type: 
  Country: None (occurrence: None)
  Receive Date: 20040406
  Receipt Date: 20040324
  Transmission Date: 20050107
  Serious: Yes (Hospitalization)
  Sender: FDA-Public Use
  Company Number: 2004004984

PATIENT
  Age: 75 Year
  Sex: Male

DRUGS (7)
  1. NORVASC [Suspect]
     Indication: BLOOD PRESSURE
     Dosage: 2.5 MG (DAILY), ORAL
     Route: 048
     Dates: start: 20031001
  2. BENZBROMARONE (BENZBROMARONE) [Concomitant]
  3. PRAVASTATIN SODIUM [Concomitant]
  4. OMEPRAZOLE [Concomitant]
  5. ESTAZOLAM [Concomitant]
  6. PANVITAN (VITAMINS NOS) [Concomitant]
  7. GLORIAMIN (LEVOGLUTAMIDE, AZULENE SODIUM SULFONATE) [Concomitant]

REACTIONS (2)
  - PLATELET COUNT INCREASED [None]
  - WHITE BLOOD CELL COUNT INCREASED [None]
